FAERS Safety Report 17293059 (Version 1)
Quarter: 2020Q1

REPORT INFORMATION
  Report Type: Spontaneous
  Country: US (occurrence: US)
  Receive Date: 20200102
  Receipt Date: 20200102
  Transmission Date: 20200409
  Serious: Yes (Hospitalization)
  Sender: FDA-Public Use
  Company Number: None

PATIENT
  Age: 78 Year
  Sex: Female

DRUGS (1)
  1. IBRANCE [Suspect]
     Active Substance: PALBOCICLIB
     Indication: BREAST CANCER FEMALE
     Dosage: 1 CAP DAILY 21 DAYS, 7 OFF ORAL
     Route: 048
     Dates: start: 20191205

REACTIONS (3)
  - Fatigue [None]
  - Febrile neutropenia [None]
  - Asthenia [None]

NARRATIVE: CASE EVENT DATE: 20191226
